FAERS Safety Report 16756975 (Version 1)
Quarter: 2019Q3

REPORT INFORMATION
  Report Type: Spontaneous
  Country: ES (occurrence: ES)
  Receive Date: 20190829
  Receipt Date: 20190829
  Transmission Date: 20191005
  Serious: Yes (Hospitalization, Other)
  Sender: FDA-Public Use
  Company Number: ES-GLAXOSMITHKLINE-ES2019GSK153611

PATIENT
  Age: 57 Year
  Sex: Male

DRUGS (1)
  1. LAMOTRIGINE. [Suspect]
     Active Substance: LAMOTRIGINE
     Indication: PETIT MAL EPILEPSY
     Dosage: UNK

REACTIONS (16)
  - Respiratory distress [Recovered/Resolved]
  - Eosinophilic pneumonia [Recovered/Resolved]
  - Pulmonary toxicity [Recovered/Resolved]
  - Crepitations [Recovered/Resolved]
  - Hypoxia [Recovered/Resolved]
  - Lung infiltration [Recovered/Resolved]
  - Drug hypersensitivity [Recovered/Resolved]
  - Organising pneumonia [Recovered/Resolved]
  - Inflammation [Recovered/Resolved]
  - General physical condition abnormal [Recovered/Resolved]
  - Rash maculo-papular [Recovered/Resolved]
  - Lung consolidation [Recovered/Resolved]
  - Vasculitis [Recovered/Resolved]
  - Pulmonary granuloma [Recovered/Resolved]
  - Hypersensitivity pneumonitis [Recovered/Resolved]
  - Excessive granulation tissue [Recovered/Resolved]
